FAERS Safety Report 9735218 (Version 1)
Quarter: 2013Q4

REPORT INFORMATION
  Report Type: Report from Study
  Country: FR (occurrence: FR)
  Receive Date: 20131206
  Receipt Date: 20131206
  Transmission Date: 20140711
  Serious: Yes (Other)
  Sender: FDA-Public Use
  Company Number: FR-PFIZER INC-2013337053

PATIENT
  Age: 56 Year
  Sex: Male
  Weight: 95 kg

DRUGS (6)
  1. SUTENT [Suspect]
     Indication: METASTATIC RENAL CELL CARCINOMA
     Dosage: 50 MG, UNK, CYCLIC
     Route: 048
     Dates: start: 20130404
  2. SUTENT [Suspect]
     Dosage: 37.5 MG, UNK, CYCLIC
     Route: 048
     Dates: end: 20131114
  3. DETENSIEL [Concomitant]
     Indication: HYPERTENSION
     Dosage: 10 MG, DAILY
     Route: 048
     Dates: start: 19870101
  4. DEBRIDAT [Concomitant]
     Indication: DIARRHOEA
     Dosage: UNK
     Route: 048
     Dates: start: 20130627, end: 20131025
  5. OXYNORMORO [Concomitant]
     Indication: BACK PAIN
     Dosage: 5 MG, DAILY
     Route: 048
     Dates: start: 20130919
  6. DOLIPRANE [Concomitant]
     Indication: BACK PAIN
     Dosage: 1000 MG, DAILY
     Route: 048
     Dates: start: 20130919

REACTIONS (1)
  - General physical health deterioration [Recovering/Resolving]
